FAERS Safety Report 6072665-2 (Version None)
Quarter: 2009Q1

REPORT INFORMATION
  Report Type: 
  Country: None (occurrence: None)
  Receive Date: 20090210
  Receipt Date: 20090128
  Transmission Date: 20090719
  Serious: Yes (Hospitalization)
  Sender: FDA-Public Use
  Company Number: RU-PFIZER INC-2009164804

PATIENT

DRUGS (3)
  1. BLINDED *PLACEBO [Suspect]
     Dosage: NO DOSE GIVEN
  2. BLINDED ZIPRASIDONE HCL [Suspect]
     Dosage: NO DOSE GIVEN
  3. CLOZAPIN ^NEURAXPHARM^ [Concomitant]
     Route: 048
     Dates: end: 20090121

REACTIONS (3)
  - AGITATION [None]
  - HOSTILITY [None]
  - INSOMNIA [None]
